FAERS Safety Report 4829248-9 (Version None)
Quarter: 2005Q4

REPORT INFORMATION
  Report Type: 
  Country: None (occurrence: None)
  Receive Date: 20051028
  Receipt Date: 20040803
  Transmission Date: 20060501
  Serious: Yes (Hospitalization)
  Sender: FDA-Public Use
  Company Number: TPA2004A00949

PATIENT
  Age: 79 Year
  Sex: Male
  Weight: 83.4619 kg

DRUGS (4)
  1. ACTOS [Suspect]
     Indication: DIABETES MELLITUS NON-INSULIN-DEPENDENT
     Dosage: 45 MG, 1 IN 1 D, PER ORAL; 22.5 MG, 1 IN 1 D, PER ORAL
     Route: 048
  2. METOPROLOL SUCCINATE [Concomitant]
  3. UNKNOWN HEART MEDICATIONS (CARDIAC THERAPY) [Concomitant]
  4. ASPIRIN [Concomitant]

REACTIONS (3)
  - CARDIAC FAILURE CONGESTIVE [None]
  - DYSPNOEA [None]
  - OEDEMA PERIPHERAL [None]
